FAERS Safety Report 5098555-X (Version None)
Quarter: 2006Q3

REPORT INFORMATION
  Report Type: 
  Country: None (occurrence: None)
  Receive Date: 20060906
  Receipt Date: 20060302
  Transmission Date: 20061208
  Serious: No
  Sender: FDA-Public Use
  Company Number: US-GLAXOSMITHKLINE-A0595896A

PATIENT
  Age: 81 Year
  Sex: Female

DRUGS (11)
  1. REQUIP [Suspect]
     Indication: RESTLESS LEGS SYNDROME
     Dosage: .25MG TWICE PER DAY
     Dates: end: 20060219
  2. AMANTADINE HCL [Concomitant]
  3. CARBIDOPA [Concomitant]
  4. SYNTHROID [Concomitant]
  5. FOSAMAX [Concomitant]
  6. METOPROLOL TARTRATE [Concomitant]
  7. RANITIDINE HCL [Concomitant]
  8. COUMADIN [Concomitant]
  9. MULTI-VITAMIN [Concomitant]
  10. CALCIUM GLUCONATE [Concomitant]
  11. CLONAZEPAM [Concomitant]

REACTIONS (1)
  - HEADACHE [None]
